FAERS Safety Report 5941081-3 (Version None)
Quarter: 2008Q4

REPORT INFORMATION
  Report Type: 
  Country: None (occurrence: None)
  Receive Date: 20081104
  Receipt Date: 20081030
  Transmission Date: 20090506
  Serious: Yes (Death)
  Sender: FDA-Public Use
  Company Number: US-ROXANE LABORATORIES, INC.-2008-BP-07585RO

PATIENT
  Sex: Male
  Weight: 184 kg

DRUGS (14)
  1. METHADONE HCL [Suspect]
     Indication: DRUG DEPENDENCE
     Dosage: 60MG
     Route: 048
     Dates: start: 20060213, end: 20060213
  2. METHADONE HCL [Suspect]
     Dosage: 40MG
     Route: 048
     Dates: start: 20060214, end: 20060214
  3. METHADONE HCL [Suspect]
     Dosage: 50MG
     Route: 048
     Dates: start: 20060215, end: 20060215
  4. METHADONE HCL [Suspect]
     Dosage: 60MG
     Route: 048
     Dates: start: 20060216, end: 20060221
  5. METHADONE HCL [Suspect]
     Dosage: 70MG
     Route: 048
     Dates: start: 20060222, end: 20060224
  6. METHADONE HCL [Suspect]
     Dosage: 80MG
     Route: 048
     Dates: start: 20060225, end: 20060226
  7. METHADONE HCL [Suspect]
  8. METHADONE HCL [Suspect]
     Dosage: 20MG
     Dates: start: 20080209, end: 20080209
  9. VICODIN [Suspect]
  10. XANAX [Concomitant]
     Dosage: 1.5MG
  11. LEXAPRO [Concomitant]
     Indication: DEPRESSION
     Dosage: 20MG
  12. ALBUTEROL [Concomitant]
     Indication: RESPIRATORY DISORDER
     Route: 055
  13. MARIJUANA [Concomitant]
  14. ALPRAZOLAM [Concomitant]
     Indication: ANXIETY
     Route: 048

REACTIONS (5)
  - ACTIVITIES OF DAILY LIVING IMPAIRED [None]
  - DRUG TOXICITY [None]
  - HYPERHIDROSIS [None]
  - VOMITING [None]
  - WITHDRAWAL SYNDROME [None]
